FAERS Safety Report 14586269 (Version 1)
Quarter: 2018Q1

REPORT INFORMATION
  Report Type: Spontaneous
  Country: CN (occurrence: CN)
  Receive Date: 20180301
  Receipt Date: 20180301
  Transmission Date: 20180509
  Serious: Yes (Hospitalization, Other)
  Sender: FDA-Public Use
  Company Number: CN-ASTELLAS-2018US010085

PATIENT
  Age: 8 Year
  Sex: Male

DRUGS (2)
  1. MICAFUNGIN [Suspect]
     Active Substance: MICAFUNGIN
     Indication: PROPHYLAXIS
     Route: 065
  2. TACROLIMUS. [Suspect]
     Active Substance: TACROLIMUS
     Indication: LIVER TRANSPLANT
     Dosage: UNK UNK, UNKNOWN FREQ.
     Route: 065

REACTIONS (10)
  - Bacterial infection [Unknown]
  - Hepatic artery occlusion [Unknown]
  - Muscle twitching [Unknown]
  - Blindness [Unknown]
  - Pyrexia [Unknown]
  - Cerebral aspergillosis [Unknown]
  - Ileal perforation [Unknown]
  - Liver injury [Recovered/Resolved]
  - Haemorrhage [Unknown]
  - Cerebral infarction [Unknown]
